FAERS Safety Report 23887015 (Version 2)
Quarter: 2024Q3

REPORT INFORMATION
  Report Type: Spontaneous
  Country: US (occurrence: US)
  Receive Date: 20240523
  Receipt Date: 20240711
  Transmission Date: 20241017
  Serious: No
  Sender: Haleon PLC
  Company Number: US-HALEON-2175521

PATIENT
  Sex: Female

DRUGS (1)
  1. ALLI [Suspect]
     Active Substance: ORLISTAT
     Indication: Weight decreased
     Dates: start: 20240514

REACTIONS (3)
  - Counterfeit product administered [Unknown]
  - Product counterfeit [Unknown]
  - Product complaint [Unknown]

NARRATIVE: CASE EVENT DATE: 20240514
